FAERS Safety Report 20044094 (Version 1)
Quarter: 2021Q4

REPORT INFORMATION
  Report Type: Spontaneous
  Country: US (occurrence: US)
  Receive Date: 20211108
  Receipt Date: 20211108
  Transmission Date: 20220303
  Serious: No
  Sender: FDA-Public Use
  Company Number: US-BEH-2021137521

PATIENT
  Sex: Male

DRUGS (1)
  1. HIZENTRA [Suspect]
     Active Substance: HUMAN IMMUNOGLOBULIN G
     Indication: Blood immunoglobulin G decreased
     Dosage: UNK
     Route: 065

REACTIONS (4)
  - Nasopharyngitis [Unknown]
  - Sinus pain [Unknown]
  - Paranasal sinus discomfort [Unknown]
  - Oropharyngeal pain [Unknown]
